FAERS Safety Report 8413538-7 (Version None)
Quarter: 2012Q2

REPORT INFORMATION
  Report Type: 
  Country: None (occurrence: None)
  Receive Date: 20120605
  Receipt Date: 20120529
  Transmission Date: 20120825
  Serious: Yes (Congenital Anomaly)
  Sender: FDA-Public Use
  Company Number: US-GLAXOSMITHKLINE-A0979918A

PATIENT
  Sex: Female

DRUGS (1)
  1. PAROXETINE HCL [Suspect]
     Indication: PRODUCT USED FOR UNKNOWN INDICATION
     Dosage: 40MG PER DAY
     Route: 064
     Dates: start: 20050101

REACTIONS (4)
  - HYDROCEPHALUS [None]
  - CEREBRAL VENTRICLE DILATATION [None]
  - FOETAL EXPOSURE DURING PREGNANCY [None]
  - MACROCEPHALY [None]
